FAERS Safety Report 22289359 (Version 1)
Quarter: 2023Q2

REPORT INFORMATION
  Report Type: Spontaneous
  Country: US (occurrence: None)
  Receive Date: 20230504
  Receipt Date: 20230504
  Transmission Date: 20230722
  Serious: No
  Sender: FDA-Public Use
  Company Number: None

PATIENT
  Age: 32 Year
  Sex: Male

DRUGS (1)
  1. TREMFYA [Suspect]
     Active Substance: GUSELKUMAB
     Indication: Psoriasis
     Dosage: INJECT 100MG (1 PEN) SUBCUTANEOUSLY EVERY 8 WEEKS AS DIRECTED
     Route: 058
     Dates: start: 202210

REACTIONS (1)
  - Gastroenteritis viral [None]
